FAERS Safety Report 24835536 (Version 1)
Quarter: 2025Q1

REPORT INFORMATION
  Report Type: Spontaneous
  Country: US (occurrence: US)
  Receive Date: 20250113
  Receipt Date: 20250113
  Transmission Date: 20250409
  Serious: No
  Sender: BANNER
  Company Number: US-PTA-005870

PATIENT
  Age: 63 Year
  Sex: Female

DRUGS (1)
  1. NAPROXEN [Suspect]
     Active Substance: NAPROXEN
     Route: 048

REACTIONS (3)
  - Illness [Unknown]
  - Ulcer [Unknown]
  - Pain [Unknown]
